FAERS Safety Report 6328726-3 (Version None)
Quarter: 2009Q3

REPORT INFORMATION
  Report Type: 
  Country: None (occurrence: None)
  Receive Date: 20090826
  Receipt Date: 20090825
  Transmission Date: 20100115
  Serious: No
  Sender: FDA-Public Use
  Company Number: US-B.I. PHARMACEUTICALS,INC./RIDGEFIELD-2009-BP-06580BP

PATIENT
  Sex: Female

DRUGS (4)
  1. SPIRIVA [Suspect]
     Indication: CHRONIC OBSTRUCTIVE PULMONARY DISEASE
     Dosage: 18 MCG
     Route: 055
     Dates: start: 20060101
  2. PAXIL [Concomitant]
     Indication: DEPRESSION
  3. HYDROCODONE [Concomitant]
     Indication: BACK INJURY
  4. PULMICORT-100 [Concomitant]
     Indication: CHRONIC OBSTRUCTIVE PULMONARY DISEASE

REACTIONS (4)
  - BILE DUCT OBSTRUCTION [None]
  - DRUG INEFFECTIVE [None]
  - NASAL CONGESTION [None]
  - VISUAL ACUITY REDUCED [None]
